FAERS Safety Report 4350081-9 (Version None)
Quarter: 2004Q2

REPORT INFORMATION
  Report Type: 
  Country: None (occurrence: None)
  Receive Date: 20040429
  Receipt Date: 20040420
  Transmission Date: 20050107
  Serious: Yes (Death, Life-Threatening)
  Sender: FDA-Public Use
  Company Number: JP-BRISTOL-MYERS SQUIBB COMPANY-12564936

PATIENT
  Age: 55 Year
  Sex: Male

DRUGS (3)
  1. PARAPLATIN [Suspect]
     Indication: OROPHARYNGEAL CANCER STAGE UNSPECIFIED
     Route: 042
     Dates: start: 20030403, end: 20030403
  2. DOCETAXEL [Suspect]
     Indication: OROPHARYNGEAL CANCER STAGE UNSPECIFIED
     Route: 042
     Dates: start: 20030403, end: 20030403
  3. RADIOTHERAPY [Suspect]
     Indication: OROPHARYNGEAL CANCER STAGE UNSPECIFIED
     Dosage: 4 MV
     Dates: start: 20030226, end: 20030424

REACTIONS (3)
  - PNEUMONIA [None]
  - RADIATION MUCOSITIS [None]
  - RADIATION SKIN INJURY [None]
